FAERS Safety Report 16204822 (Version 2)
Quarter: 2019Q2

REPORT INFORMATION
  Report Type: Report from Study
  Country: BE (occurrence: BE)
  Receive Date: 20190416
  Receipt Date: 20190607
  Transmission Date: 20190711
  Serious: Yes (Life-Threatening, Hospitalization)
  Sender: FDA-Public Use
  Company Number: BE-PFIZER INC-2019158416

PATIENT
  Age: 26 Year
  Sex: Female
  Weight: 76 kg

DRUGS (7)
  1. ENTOCORT [Concomitant]
     Active Substance: BUDESONIDE
     Dosage: UNK
     Dates: start: 20190218
  2. MEDROL [Suspect]
     Active Substance: METHYLPREDNISOLONE
     Dosage: 160 MG, UNK
     Route: 042
     Dates: start: 20190325
  3. RAPAMUNE [Concomitant]
     Active Substance: SIROLIMUS
     Dosage: UNK
     Dates: start: 20190324
  4. MEDROL [Suspect]
     Active Substance: METHYLPREDNISOLONE
     Indication: ACUTE GRAFT VERSUS HOST DISEASE
     Dosage: 64 MG, BID
     Route: 048
     Dates: start: 20190218, end: 20190309
  5. BECLOMETHASONE DIPROPIONATE [BECLOMETASONE DIPROPIONATE] [Concomitant]
     Dosage: UNK
     Dates: start: 20190218
  6. MEDROL [Suspect]
     Active Substance: METHYLPREDNISOLONE
     Dosage: 120 MG, UNK
     Route: 042
     Dates: start: 20190309, end: 20190325
  7. PROGRAFT [Concomitant]
     Active Substance: TACROLIMUS
     Dosage: UNK
     Dates: start: 20190120

REACTIONS (4)
  - Staphylococcal bacteraemia [Recovered/Resolved]
  - Pneumatosis intestinalis [Recovered/Resolved]
  - Nervous system disorder [Recovered/Resolved]
  - Thrombotic microangiopathy [Recovered/Resolved]

NARRATIVE: CASE EVENT DATE: 20190308
